FAERS Safety Report 16896175 (Version 3)
Quarter: 2019Q4

REPORT INFORMATION
  Report Type: Report from Study
  Country: CA (occurrence: CA)
  Receive Date: 20191008
  Receipt Date: 20191210
  Transmission Date: 20200122
  Serious: Yes (Other)
  Sender: FDA-Public Use
  Company Number: CA-NALPROPION PHARMACEUTICALS INC.-2019-008412

PATIENT

DRUGS (12)
  1. CONTRAVE [Suspect]
     Active Substance: BUPROPION HYDROCHLORIDE\NALTREXONE HYDROCHLORIDE
     Dosage: 2 TABLETS IN MORNING AND 2 TABLETS IN THE EVENING END DATE 13/SEP/2019 (APPROX)
     Route: 048
     Dates: start: 20190910, end: 201909
  2. CONTRAVE [Suspect]
     Active Substance: BUPROPION HYDROCHLORIDE\NALTREXONE HYDROCHLORIDE
     Dosage: 2 TABLETS IN MORNING AND 1 TABLET IN THE EVENING
     Route: 048
     Dates: start: 20190903, end: 20190909
  3. METHOTREXATE. [Concomitant]
     Active Substance: METHOTREXATE
     Indication: AUTOIMMUNE DISORDER
     Dosage: 1 IN 1 D
     Route: 048
  4. PERINDO/AMLODIPINE [Concomitant]
     Indication: HYPERTENSION
     Dosage: 3.5/2.5 MG, 1 IN 1 D
     Route: 048
  5. CONTRAVE [Suspect]
     Active Substance: BUPROPION HYDROCHLORIDE\NALTREXONE HYDROCHLORIDE
     Dosage: 1 TABLET IN MORNING AND 1 TABLET IN THE EVENING
     Route: 048
     Dates: start: 20190827, end: 20190902
  6. CONTRAVE [Suspect]
     Active Substance: BUPROPION HYDROCHLORIDE\NALTREXONE HYDROCHLORIDE
     Dosage: 15/SEP/2019 (APPROX) TO 21/SEP/2019 (APPROX)
     Route: 048
     Dates: start: 201909, end: 201909
  7. CONTRAVE [Suspect]
     Active Substance: BUPROPION HYDROCHLORIDE\NALTREXONE HYDROCHLORIDE
     Dosage: STARTED ON 22/SEP/2019 (APPROX.) 2 TABS IN THE MORNING AND 1 TABLET IN THE EVENING
     Route: 048
     Dates: start: 201909, end: 201909
  8. CONTRAVE [Suspect]
     Active Substance: BUPROPION HYDROCHLORIDE\NALTREXONE HYDROCHLORIDE
     Dosage: 2 TABS IN THE MORNING AND 2 TABLET IN THE EVENING
     Route: 048
     Dates: start: 20190928
  9. CONTRAVE [Suspect]
     Active Substance: BUPROPION HYDROCHLORIDE\NALTREXONE HYDROCHLORIDE
     Indication: WEIGHT CONTROL
     Dosage: 1 TABLET IN MORNING
     Route: 048
     Dates: start: 20190820, end: 20190826
  10. MIRABEGRON [Concomitant]
     Active Substance: MIRABEGRON
     Indication: HYPERTONIC BLADDER
     Dosage: 1 IN 1 D
     Route: 048
  11. CELEXA                             /01400501/ [Concomitant]
     Active Substance: CELECOXIB
     Indication: DEPRESSION
     Dosage: 1 IN 1 D
     Route: 048
  12. PLAQUENIL                          /00072602/ [Concomitant]
     Active Substance: HYDROXYCHLOROQUINE DIPHOSPHATE
     Indication: AUTOIMMUNE DISORDER
     Dosage: 1 IN 1 D
     Route: 048

REACTIONS (9)
  - Drug titration error [Unknown]
  - Contraindicated product administered [Unknown]
  - Insomnia [Not Recovered/Not Resolved]
  - Surgery [Unknown]
  - Condition aggravated [Not Recovered/Not Resolved]
  - Nausea [Recovered/Resolved]
  - Product prescribing error [Unknown]
  - Libido increased [Recovered/Resolved]
  - Product dose omission [Unknown]

NARRATIVE: CASE EVENT DATE: 2019
